FAERS Safety Report 6035780-5 (Version None)
Quarter: 2009Q1

REPORT INFORMATION
  Report Type: 
  Country: None (occurrence: None)
  Receive Date: 20090113
  Receipt Date: 20090107
  Transmission Date: 20090719
  Serious: Yes (Other)
  Sender: FDA-Public Use
  Company Number: US-BIOGENIDEC-2008BI031989

PATIENT
  Age: 38 Year
  Sex: Female

DRUGS (1)
  1. TYSABRI [Suspect]
     Indication: MULTIPLE SCLEROSIS
     Route: 042
     Dates: start: 20081021

REACTIONS (5)
  - BALANCE DISORDER [None]
  - CYSTITIS [None]
  - FUNGAL INFECTION [None]
  - POST PROCEDURAL COMPLICATION [None]
  - VOMITING [None]
